FAERS Safety Report 12658756 (Version 1)
Quarter: 2016Q3

REPORT INFORMATION
  Report Type: Spontaneous
  Country: US (occurrence: None)
  Receive Date: 20160816
  Receipt Date: 20160816
  Transmission Date: 20161109
  Serious: Yes (Other)
  Sender: FDA-Public Use
  Company Number: None

PATIENT
  Age: 52 Year
  Sex: Female
  Weight: 58.97 kg

DRUGS (4)
  1. VITAMIN B12 [Concomitant]
     Active Substance: CYANOCOBALAMIN
  2. FOLIC ACID. [Concomitant]
     Active Substance: FOLIC ACID
  3. OPIUM TINCTURE [Suspect]
     Active Substance: MORPHINE
     Indication: DIARRHOEA
     Route: 048
  4. VITAMIN D [Concomitant]
     Active Substance: CHOLECALCIFEROL

REACTIONS (4)
  - Diarrhoea [None]
  - Drug ineffective [None]
  - Product substitution issue [None]
  - Withdrawal syndrome [None]
